FAERS Safety Report 18707421 (Version 3)
Quarter: 2021Q1

REPORT INFORMATION
  Report Type: Spontaneous
  Country: US (occurrence: US)
  Receive Date: 20210106
  Receipt Date: 20210303
  Transmission Date: 20210419
  Serious: No
  Sender: FDA-Public Use
  Company Number: US-VERTEX PHARMACEUTICALS-2020-025538

PATIENT
  Age: 23 Year
  Sex: Female
  Weight: 58 kg

DRUGS (8)
  1. TRIKAFTA [Suspect]
     Active Substance: ELEXACAFTOR\IVACAFTOR\TEZACAFTOR
     Dosage: TWICE A WEEK; MONDAY AND THURSDAY
     Route: 048
  2. VITAMIN D2 [Concomitant]
     Active Substance: ERGOCALCIFEROL
  3. HYPERSAL [Concomitant]
     Active Substance: SODIUM CHLORIDE
  4. TRIKAFTA [Suspect]
     Active Substance: ELEXACAFTOR\IVACAFTOR\TEZACAFTOR
     Dosage: (TWICE A WEEK)
     Route: 048
  5. PULMOZYME [Concomitant]
     Active Substance: DORNASE ALFA
  6. ALBUTEROL SULFATE. [Concomitant]
     Active Substance: ALBUTEROL SULFATE
  7. TRIKAFTA [Suspect]
     Active Substance: ELEXACAFTOR\IVACAFTOR\TEZACAFTOR
     Indication: CYSTIC FIBROSIS
     Dosage: 2ORANGE TABS(100MG ELEXACAFTOR/50MG TEZACAFTOR/75MG IVACAFTOR)IN AM;1TAB(150MG IVACAFTOR)IN PM
     Route: 048
     Dates: start: 20200714
  8. ZYRTEC [LEVOCABASTINE HYDROCHLORIDE] [Concomitant]
     Active Substance: LEVOCABASTINE HYDROCHLORIDE

REACTIONS (1)
  - Hepatic enzyme increased [Recovered/Resolved]

NARRATIVE: CASE EVENT DATE: 202101
